FAERS Safety Report 18878883 (Version 1)
Quarter: 2021Q1

REPORT INFORMATION
  Report Type: Spontaneous
  Country: FR (occurrence: FR)
  Receive Date: 20210211
  Receipt Date: 20210211
  Transmission Date: 20210420
  Serious: Yes (Other)
  Sender: FDA-Public Use
  Company Number: FR-MYLANLABS-2021M1008494

PATIENT
  Age: 63 Year
  Sex: Male
  Weight: 64 kg

DRUGS (1)
  1. DICLOFENAC MYLAN [Suspect]
     Active Substance: DICLOFENAC SODIUM
     Indication: ARTHRALGIA
     Dosage: 1 DOSAGE FORM, QD
     Route: 061
     Dates: start: 20200115, end: 20200117

REACTIONS (2)
  - Haematochezia [Recovered/Resolved]
  - Swollen tongue [Recovered/Resolved]

NARRATIVE: CASE EVENT DATE: 20200116
